FAERS Safety Report 6063327-6 (Version None)
Quarter: 2009Q1

REPORT INFORMATION
  Report Type: 
  Country: None (occurrence: None)
  Receive Date: 20090203
  Receipt Date: 20090122
  Transmission Date: 20090719
  Serious: Yes (Other)
  Sender: FDA-Public Use
  Company Number: US-PFIZER INC-2009160360

PATIENT
  Sex: Male
  Weight: 89.811 kg

DRUGS (2)
  1. VIAGRA [Suspect]
     Indication: ERECTILE DYSFUNCTION
     Dosage: 100 MG, UNK
  2. NORVASC [Suspect]
     Indication: HYPERTENSION
     Dosage: 5 MG, UNK

REACTIONS (2)
  - DRUG INEFFECTIVE [None]
  - HYPERTENSION [None]
